FAERS Safety Report 4388887-2 (Version None)
Quarter: 2004Q3

REPORT INFORMATION
  Report Type: 
  Country: None (occurrence: None)
  Receive Date: 20040701
  Receipt Date: 20040701
  Transmission Date: 20050211
  Serious: Yes (Life-Threatening, Hospitalization)
  Sender: FDA-Public Use
  Company Number: None

PATIENT
  Age: 82 Year
  Sex: Female
  Weight: 65.7716 kg

DRUGS (1)
  1. XANAX [Suspect]
     Indication: RESTLESSNESS
     Dosage: ONE, 0.5 ML
     Dates: start: 20030825

REACTIONS (16)
  - ABASIA [None]
  - ABNORMAL BEHAVIOUR [None]
  - BLOOD GLUCOSE ABNORMAL [None]
  - BLOOD POTASSIUM DECREASED [None]
  - CATHETER SITE INFECTION [None]
  - CRYING [None]
  - EYELID PTOSIS [None]
  - FEEDING TUBE COMPLICATION [None]
  - HALLUCINATION [None]
  - HEART RATE INCREASED [None]
  - HYPERTENSION [None]
  - LOSS OF CONSCIOUSNESS [None]
  - MARKEDLY REDUCED DIETARY INTAKE [None]
  - MEDICATION ERROR [None]
  - SCREAMING [None]
  - SPEECH DISORDER [None]
